FAERS Safety Report 5842278-3 (Version None)
Quarter: 2008Q3

REPORT INFORMATION
  Report Type: 
  Country: None (occurrence: None)
  Receive Date: 20080812
  Receipt Date: 20080731
  Transmission Date: 20090109
  Serious: Yes (Death, Hospitalization)
  Sender: FDA-Public Use
  Company Number: GB-ROCHE-90715

PATIENT
  Sex: Male
  Weight: 70 kg

DRUGS (7)
  1. INVIRASE [Suspect]
     Indication: CD4 LYMPHOCYTES DECREASED
     Route: 048
     Dates: start: 19970619, end: 19970925
  2. CO-TRIMOXAZOLE [Suspect]
     Route: 048
     Dates: start: 19960615, end: 19970929
  3. STAVUDINE [Suspect]
     Indication: HIV INFECTION
     Dosage: INTERVAL REPORTED AS 1 DAY
     Route: 048
     Dates: start: 19970619, end: 19970925
  4. DDI [Suspect]
     Indication: HIV INFECTION
     Dosage: INTERVAL REPORTED AS 1 DAY
     Route: 048
     Dates: start: 19961215, end: 19970929
  5. MULTI-VITAMINS [Suspect]
     Route: 048
     Dates: start: 19960101, end: 19970929
  6. ZALCITABINE [Concomitant]
     Indication: CD4 LYMPHOCYTES DECREASED
     Dosage: INTERVAL REPORTED AS 1 DAY
     Route: 048
     Dates: start: 19960615, end: 19970619
  7. ZIDOVUDINE [Concomitant]
     Indication: CD4 LYMPHOCYTES DECREASED
     Route: 048
     Dates: start: 19960615, end: 19970619

REACTIONS (10)
  - ASPARTATE AMINOTRANSFERASE INCREASED [None]
  - ATRIAL FIBRILLATION [None]
  - BLOOD ALKALINE PHOSPHATASE INCREASED [None]
  - HEPATIC FAILURE [None]
  - JAUNDICE [None]
  - LACTIC ACIDOSIS [None]
  - LIVER FUNCTION TEST ABNORMAL [None]
  - NAUSEA [None]
  - SEPSIS [None]
  - VOMITING [None]
